FAERS Safety Report 4700919-8 (Version None)
Quarter: 2005Q2

REPORT INFORMATION
  Report Type: 
  Country: None (occurrence: None)
  Receive Date: 20050624
  Receipt Date: 20050609
  Transmission Date: 20051028
  Serious: Yes (Hospitalization)
  Sender: FDA-Public Use
  Company Number: TAP2005Q00972

PATIENT
  Age: 26 Year
  Sex: Female

DRUGS (2)
  1. LUPRON DEPOT-3 [Suspect]
     Indication: ENDOMETRIOSIS
     Dosage: 11.25 MG, ONCE, INTRAMUSCULAR
     Route: 030
     Dates: start: 20050602, end: 20050602
  2. UNSPECIFIED HORMONE ADD BACK THERAPY (HORMONES AND RELATED AGENTS) [Concomitant]

REACTIONS (5)
  - CARDIAC ARREST [None]
  - CONVULSION [None]
  - DYSPNOEA [None]
  - LOSS OF CONSCIOUSNESS [None]
  - SWOLLEN TONGUE [None]
